FAERS Safety Report 6479519-8 (Version None)
Quarter: 2009Q4

REPORT INFORMATION
  Report Type: 
  Country: None (occurrence: None)
  Receive Date: 20091207
  Receipt Date: 20091207
  Transmission Date: 20100525
  Serious: No
  Sender: FDA-Public Use
  Company Number: None

PATIENT
  Age: 78 Year
  Sex: Female

DRUGS (1)
  1. LISINOPRIL [Suspect]
     Dosage: 10MG UNKNOWN UNK
     Dates: start: 20060101, end: 20091008

REACTIONS (1)
  - COUGH [None]
